FAERS Safety Report 21768312 (Version 1)
Quarter: 2022Q4

REPORT INFORMATION
  Report Type: Spontaneous
  Country: US (occurrence: US)
  Receive Date: 20221222
  Receipt Date: 20221222
  Transmission Date: 20230113
  Serious: Yes (Hospitalization)
  Sender: FDA-Public Use
  Company Number: US-ANIPHARMA-2022-US-029674

PATIENT
  Sex: Female

DRUGS (23)
  1. CORTICOTROPIN [Suspect]
     Active Substance: CORTICOTROPIN
     Indication: Rheumatoid arthritis
     Dosage: INJECT 80 UNITS (1ML) SUBCUTANEOUSLY TWICE WEEKLY
     Route: 058
  2. PROLIA [Concomitant]
     Active Substance: DENOSUMAB
     Route: 065
  3. XYZAL ALLERGY 24HR [Concomitant]
     Active Substance: LEVOCETIRIZINE DIHYDROCHLORIDE
     Route: 065
  4. EMGALITY [Concomitant]
     Active Substance: GALCANEZUMAB-GNLM
     Route: 065
  5. MULTIVITAMIN/MINERALS [Concomitant]
     Route: 065
  6. LANSOPRAZOLE [Concomitant]
     Active Substance: LANSOPRAZOLE
     Route: 065
  7. TRAMADOL HCL [Concomitant]
     Active Substance: TRAMADOL HYDROCHLORIDE
     Route: 065
  8. PRIMIDONE [Concomitant]
     Active Substance: PRIMIDONE
     Route: 065
  9. ZOFRAN [Concomitant]
     Active Substance: ONDANSETRON HYDROCHLORIDE
     Route: 065
  10. LASIX [Concomitant]
     Active Substance: FUROSEMIDE
     Route: 065
  11. BACLOFEN [Concomitant]
     Active Substance: BACLOFEN
     Route: 065
  12. OPIUM TINCTURE [Concomitant]
     Active Substance: MORPHINE
     Route: 065
  13. FOLIC ACID [Concomitant]
     Active Substance: FOLIC ACID
     Route: 065
  14. XANAX XR [Concomitant]
     Active Substance: ALPRAZOLAM
     Route: 065
  15. BUPROPION HYDROCHLORIDE E [Concomitant]
     Route: 065
  16. METHOTREXATE [Concomitant]
     Active Substance: METHOTREXATE
     Route: 065
  17. PHAZYME MAXIMUM STRENGTH [Concomitant]
     Route: 065
  18. RIZATRIPTAN BENZOATE [Concomitant]
     Active Substance: RIZATRIPTAN BENZOATE
     Route: 065
  19. IMODIUM MULTI-SYMPTOM RELIEF [Concomitant]
     Active Substance: DIMETHICONE\LOPERAMIDE HYDROCHLORIDE
     Route: 065
  20. TPN ELECTROLYTES FTV [Concomitant]
     Route: 065
  21. FLUOXETINE HYDROCHLORIDE [Concomitant]
     Active Substance: FLUOXETINE HYDROCHLORIDE
     Route: 065
  22. ATENOLOL [Concomitant]
     Active Substance: ATENOLOL
     Route: 065
  23. MOTOFEN [Concomitant]
     Active Substance: ATROPINE SULFATE\DIFENOXIN HYDROCHLORIDE
     Route: 065

REACTIONS (1)
  - Gastrointestinal stoma complication [Unknown]
